FAERS Safety Report 9331882 (Version 2)
Quarter: 2013Q3

REPORT INFORMATION
  Report Type: Spontaneous
  Country: US (occurrence: None)
  Receive Date: 20130603
  Receipt Date: 20130701
  Transmission Date: 20140515
  Serious: Yes (Other)
  Sender: FDA-Public Use
  Company Number: ACO_36429_2013

PATIENT
  Age: 61 Year
  Sex: Female

DRUGS (8)
  1. AMPYRA [Suspect]
     Indication: GAIT DISTURBANCE
     Route: 048
     Dates: start: 20120604
  2. AMPYRA [Suspect]
     Indication: MULTIPLE SCLEROSIS
     Route: 048
     Dates: start: 20120604
  3. BETASERON [Suspect]
     Indication: PRODUCT USED FOR UNKNOWN INDICATION
     Dates: end: 2012
  4. PRIMIDONE (PRIMIDONE) [Concomitant]
  5. TOPIRAMATE (TOPIRAMATE) [Concomitant]
  6. PROPRANOLOL (PROPRANOLOL HYDROCHLORIDE) [Concomitant]
  7. BACLOFEN (BACLOFEN) [Concomitant]
  8. ALPRAZOLAM (ALPRAZOLAM) [Concomitant]

REACTIONS (3)
  - Blood alkaline phosphatase increased [None]
  - Aspartate aminotransferase increased [None]
  - Alanine aminotransferase increased [None]
